FAERS Safety Report 16378596 (Version 1)
Quarter: 2019Q2

REPORT INFORMATION
  Report Type: Spontaneous
  Country: US (occurrence: US)
  Receive Date: 20190415
  Receipt Date: 20190415
  Transmission Date: 20190711
  Serious: Yes (Hospitalization)
  Sender: FDA-Public Use
  Company Number: None

PATIENT
  Age: 32 Year
  Sex: Female

DRUGS (21)
  1. FENTANYL. [Concomitant]
     Active Substance: FENTANYL
  2. FOLIC ACID. [Concomitant]
     Active Substance: FOLIC ACID
  3. AMITRIPTYLIN [Concomitant]
     Active Substance: AMITRIPTYLINE
  4. DIGOX [Concomitant]
     Active Substance: DIGOXIN
  5. LEVOTHOROXIN [Concomitant]
  6. SPIRONOLACT [Concomitant]
     Active Substance: SPIRONOLACTONE
  7. LISINOPRIL. [Concomitant]
     Active Substance: LISINOPRIL
  8. PREDNISONE. [Concomitant]
     Active Substance: PREDNISONE
  9. ASPIRIN. [Concomitant]
     Active Substance: ASPIRIN
  10. NAPROXEN. [Concomitant]
     Active Substance: NAPROXEN
  11. OXYCODONE AND ACETAMINOPHEN [Concomitant]
     Active Substance: ACETAMINOPHEN\OXYCODONE HYDROCHLORIDE
  12. PANTOPRAZOLE [Concomitant]
     Active Substance: PANTOPRAZOLE
  13. HUMIRA [Suspect]
     Active Substance: ADALIMUMAB
     Indication: RHEUMATOID ARTHRITIS
     Dosage: ?          OTHER FREQUENCY:EVERY 14 DAYS;?
     Route: 058
     Dates: start: 20170404
  14. METHOTREXATE. [Concomitant]
     Active Substance: METHOTREXATE
  15. VITAMIN D [Concomitant]
     Active Substance: VITAMIN D NOS
  16. ALLOPURINOL. [Concomitant]
     Active Substance: ALLOPURINOL
  17. GABAPENTIN. [Concomitant]
     Active Substance: GABAPENTIN
  18. ALENDRONATE [Concomitant]
     Active Substance: ALENDRONATE SODIUM
  19. CARVEDILOL. [Concomitant]
     Active Substance: CARVEDILOL
  20. CITALOPRAM [Concomitant]
     Active Substance: CITALOPRAM HYDROBROMIDE
  21. ENOXAPARIN [Concomitant]
     Active Substance: ENOXAPARIN

REACTIONS (2)
  - Surgery [None]
  - Therapy cessation [None]

NARRATIVE: CASE EVENT DATE: 20190212
